FAERS Safety Report 6035447-3 (Version None)
Quarter: 2009Q1

REPORT INFORMATION
  Report Type: 
  Country: None (occurrence: None)
  Receive Date: 20090113
  Receipt Date: 20090107
  Transmission Date: 20090719
  Serious: Yes (Death)
  Sender: FDA-Public Use
  Company Number: JP-BRISTOL-MYERS SQUIBB COMPANY-14464713

PATIENT
  Age: 64 Year
  Sex: Male

DRUGS (2)
  1. PARAPLATIN [Suspect]
     Indication: OESOPHAGEAL CARCINOMA
     Route: 041
     Dates: start: 20071001, end: 20071001
  2. IRINOTECAN HCL [Suspect]
     Indication: OESOPHAGEAL CARCINOMA
     Route: 065
     Dates: start: 20071001, end: 20071001

REACTIONS (1)
  - DISSEMINATED INTRAVASCULAR COAGULATION [None]
